FAERS Safety Report 6178597-3 (Version None)
Quarter: 2009Q2

REPORT INFORMATION
  Report Type: 
  Country: None (occurrence: None)
  Receive Date: 20090430
  Receipt Date: 20090414
  Transmission Date: 20091009
  Serious: Yes (Death)
  Sender: FDA-Public Use
  Company Number: 1000005948

PATIENT
  Age: 87 Year
  Sex: Male

DRUGS (14)
  1. MEMANTINE HCL [Suspect]
     Indication: DEMENTIA ALZHEIMER'S TYPE
     Dosage: 5 MG (5 MG,1 IN 1 D),ORAL ; 10 MG (5 MG,2 IN 1 D)
     Route: 048
     Dates: start: 20090401, end: 20090407
  2. MEMANTINE HCL [Suspect]
     Indication: DEMENTIA ALZHEIMER'S TYPE
     Dosage: 5 MG (5 MG,1 IN 1 D),ORAL ; 10 MG (5 MG,2 IN 1 D)
     Route: 048
     Dates: start: 20090408
  3. LANSOPRAZOLE [Concomitant]
  4. MULTI-VITAMINS [Concomitant]
  5. ERGOCALCIFEROL [Concomitant]
  6. ATORVASTATIN [Concomitant]
  7. ACETYLSALICYLIC ACID [Concomitant]
  8. LEVOTHYROXINE SODIUM [Concomitant]
  9. DONEPEZIL HCL [Concomitant]
  10. MAGNESIUM HYDROXIDE TAB [Concomitant]
  11. CITALOPRAM HYDROBROMIDE [Concomitant]
  12. GRAVOL TAB [Concomitant]
  13. GLYCEROL 2.6% [Concomitant]
  14. TYLENOL [Concomitant]

REACTIONS (1)
  - INTESTINAL OBSTRUCTION [None]
